FAERS Safety Report 21270842 (Version 1)
Quarter: 2022Q3

REPORT INFORMATION
  Report Type: Spontaneous
  Country: US (occurrence: None)
  Receive Date: 20220830
  Receipt Date: 20220830
  Transmission Date: 20221026
  Serious: Yes (Hospitalization)
  Sender: FDA-Public Use
  Company Number: US-ROCHE-3168599

PATIENT
  Age: 71 Year
  Sex: Male
  Weight: 79.365 kg

DRUGS (1)
  1. PEGASYS [Suspect]
     Active Substance: PEGINTERFERON ALFA-2A
     Indication: Non-Hodgkin^s lymphoma
     Dosage: SINGLE-DOSE VIAL PACKAGE 180 MCG/ML?LAST DOSE ADMINISTERED ON 02/JUN/2022
     Route: 058

REACTIONS (3)
  - Platelet count decreased [Recovering/Resolving]
  - Weight decreased [Unknown]
  - Off label use [Unknown]

NARRATIVE: CASE EVENT DATE: 20220602
